FAERS Safety Report 6829500-1 (Version None)
Quarter: 2010Q3

REPORT INFORMATION
  Report Type: 
  Country: None (occurrence: None)
  Receive Date: 20100709
  Receipt Date: 20070319
  Transmission Date: 20110219
  Serious: Yes (Other)
  Sender: FDA-Public Use
  Company Number: US-PFIZER INC-2007016164

PATIENT
  Sex: Female
  Weight: 56.7 kg

DRUGS (9)
  1. CHANTIX [Suspect]
     Indication: EX-TOBACCO USER
     Dosage: DAILY
     Route: 048
     Dates: start: 20070219
  2. PROTONIX [Suspect]
     Indication: GASTROOESOPHAGEAL REFLUX DISEASE
     Dates: end: 20070315
  3. CRESTOR [Concomitant]
     Route: 048
     Dates: start: 20070201, end: 20070219
  4. METOPROLOL [Concomitant]
     Route: 048
     Dates: start: 20070201
  5. PLAVIX [Concomitant]
     Route: 048
     Dates: start: 20070201
  6. ASPIRIN [Concomitant]
     Route: 048
     Dates: start: 20070201
  7. ALL OTHER THERAPEUTIC PRODUCTS [Concomitant]
     Route: 048
  8. SYNTHROID [Concomitant]
  9. TOPROL-XL [Concomitant]

REACTIONS (9)
  - DIZZINESS [None]
  - DYSGEUSIA [None]
  - GASTROOESOPHAGEAL REFLUX DISEASE [None]
  - HEADACHE [None]
  - HYPERHIDROSIS [None]
  - MYOCARDIAL INFARCTION [None]
  - NAUSEA [None]
  - OESOPHAGEAL PAIN [None]
  - WEIGHT DECREASED [None]
